FAERS Safety Report 10336564 (Version 1)
Quarter: 2014Q3

REPORT INFORMATION
  Report Type: Spontaneous
  Country: US (occurrence: US)
  Receive Date: 20140723
  Receipt Date: 20140723
  Transmission Date: 20150326
  Serious: No
  Sender: FDA-Public Use
  Company Number: US-BRISTOL-MYERS SQUIBB COMPANY-20834842

PATIENT
  Age: 60 Year
  Sex: Female

DRUGS (2)
  1. COUMADIN [Suspect]
     Active Substance: WARFARIN SODIUM
     Indication: CEREBROVASCULAR ACCIDENT PROPHYLAXIS
     Dates: start: 2006
  2. LIPITOR [Concomitant]
     Active Substance: ATORVASTATIN CALCIUM

REACTIONS (2)
  - International normalised ratio decreased [Unknown]
  - Food interaction [Unknown]
